FAERS Safety Report 24659079 (Version 2)
Quarter: 2025Q1

REPORT INFORMATION
  Report Type: Spontaneous
  Country: GB (occurrence: GB)
  Receive Date: 20241125
  Receipt Date: 20250217
  Transmission Date: 20250409
  Serious: Yes (Other)
  Sender: MYLAN
  Company Number: GB-MYLANLABS-2024M1104327

PATIENT
  Sex: Male

DRUGS (1)
  1. CLOZARIL [Suspect]
     Active Substance: CLOZAPINE
     Indication: Schizophrenia
     Route: 048
     Dates: start: 20180518

REACTIONS (1)
  - Neoplasm malignant [Unknown]
